FAERS Safety Report 4940711-2 (Version None)
Quarter: 2006Q1

REPORT INFORMATION
  Report Type: 
  Country: None (occurrence: None)
  Receive Date: 20060307
  Receipt Date: 20060222
  Transmission Date: 20060701
  Serious: Yes (Hospitalization)
  Sender: FDA-Public Use
  Company Number: 2004-122288-NL

PATIENT
  Age: 31 Year
  Sex: Female

DRUGS (11)
  1. MENOTROPINS [Suspect]
     Dosage: 300 IU
     Route: 030
     Dates: start: 20030924, end: 20030928
  2. UROFOLLITROPIN [Suspect]
     Dosage: 225 IU
     Route: 030
     Dates: start: 20030920, end: 20030923
  3. CHORIONIC GONADOTROPIN [Concomitant]
     Dosage: SEE IMAGE
     Route: 030
     Dates: start: 20030929, end: 20030929
  4. CHORIONIC GONADOTROPIN [Concomitant]
     Dosage: SEE IMAGE
     Route: 030
     Dates: start: 20031003, end: 20031003
  5. CHORIONIC GONADOTROPIN [Concomitant]
     Dosage: SEE IMAGE
     Route: 030
     Dates: start: 20031006, end: 20031006
  6. BUSERELIN ACETATE [Suspect]
     Indication: IN VITRO FERTILISATION
     Dosage: 900 UG
     Route: 045
     Dates: start: 20030908, end: 20030928
  7. PENTAZOCINE LACTATE [Concomitant]
  8. ATROPINE SULFATE [Concomitant]
  9. DIAZEPAM [Concomitant]
  10. KETAMINE HCL [Concomitant]
  11. CEFDINIR [Concomitant]

REACTIONS (4)
  - DRUG EXPOSURE DURING PREGNANCY [None]
  - OVARIAN HYPERSTIMULATION SYNDROME [None]
  - PAIN [None]
  - VULVAL OEDEMA [None]
